FAERS Safety Report 5189860-7 (Version None)
Quarter: 2006Q4

REPORT INFORMATION
  Report Type: 
  Country: None (occurrence: None)
  Receive Date: 20061215
  Receipt Date: 20061205
  Transmission Date: 20070319
  Serious: Yes (Other)
  Sender: FDA-Public Use
  Company Number: 2006111059

PATIENT
  Age: 24 Year
  Sex: Male

DRUGS (2)
  1. SERTRALINE [Suspect]
     Indication: DEPRESSION
     Dosage: (100 MG), ORAL
     Route: 048
     Dates: start: 20030101
  2. ARIPIPRAZOLE (ARIPIPRAZOLE) [Suspect]
     Indication: DELUSIONAL DISORDER, PERSECUTORY TYPE
     Dosage: (15 MG), ORAL
     Route: 048
     Dates: start: 20051101

REACTIONS (3)
  - DELUSIONAL DISORDER, PERSECUTORY TYPE [None]
  - SICK SINUS SYNDROME [None]
  - SINUS BRADYCARDIA [None]
